FAERS Safety Report 9010859 (Version 2)
Quarter: 2013Q3

REPORT INFORMATION
  Report Type: Spontaneous
  Country: IL (occurrence: IL)
  Receive Date: 20130109
  Receipt Date: 20130807
  Transmission Date: 20140515
  Serious: Yes (Death, Hospitalization, Other)
  Sender: FDA-Public Use
  Company Number: IL-JNJFOC-20130100119

PATIENT
  Age: 56 Year
  Sex: Female
  Weight: 75 kg

DRUGS (9)
  1. REMICADE [Suspect]
     Indication: PSORIATIC ARTHROPATHY
     Route: 042
     Dates: start: 2005, end: 20120907
  2. REMICADE [Suspect]
     Indication: ARTHROPATHY
     Route: 042
     Dates: start: 2005, end: 20120907
  3. AZATHIOPRINE [Suspect]
     Indication: ARTHROPATHY
     Route: 065
  4. PREDNISONE [Suspect]
     Indication: ARTHROPATHY
     Route: 065
  5. CALTRATE [Concomitant]
     Indication: OSTEOPOROSIS
     Route: 065
  6. AZILECT [Concomitant]
     Indication: PARKINSON^S DISEASE
     Route: 065
  7. DOPICAR [Concomitant]
     Indication: PARKINSON^S DISEASE
     Route: 065
  8. AMANTADINE [Concomitant]
     Indication: PARKINSON^S DISEASE
     Route: 065
  9. NORVASC [Concomitant]
     Indication: HYPERTENSION
     Route: 065

REACTIONS (7)
  - Neutropenia [Fatal]
  - Mycosis fungoides [Not Recovered/Not Resolved]
  - Thrombocytopenia [Unknown]
  - Skin haemorrhage [Unknown]
  - Fatigue [Unknown]
  - Rash [Unknown]
  - Weight decreased [Unknown]
